FAERS Safety Report 5668690-3 (Version None)
Quarter: 2008Q1

REPORT INFORMATION
  Report Type: 
  Country: None (occurrence: None)
  Receive Date: 20080312
  Receipt Date: 20080304
  Transmission Date: 20080703
  Serious: Yes (Other)
  Sender: FDA-Public Use
  Company Number: 066-C5013-08020561

PATIENT
  Sex: Female

DRUGS (3)
  1. CC-5013 (LENALIDOMIDE) (CAPSULES) [Suspect]
     Indication: MULTIPLE MYELOMA
     Dosage: 10 MG, DAILY; ORAL, 10 MG, EVERY OTHER DAY, ORAL
     Route: 048
     Dates: start: 20070701
  2. CC-5013 (LENALIDOMIDE) (CAPSULES) [Suspect]
     Indication: MULTIPLE MYELOMA
     Dosage: 10 MG, DAILY; ORAL, 10 MG, EVERY OTHER DAY, ORAL
     Route: 048
     Dates: start: 20080227
  3. DURAGESIC-100 [Concomitant]

REACTIONS (1)
  - TUBERCULOSIS [None]
